FAERS Safety Report 20868250 (Version 1)
Quarter: 2022Q2

REPORT INFORMATION
  Report Type: Spontaneous
  Country: IN (occurrence: IN)
  Receive Date: 20220524
  Receipt Date: 20220524
  Transmission Date: 20220721
  Serious: Yes (Other)
  Sender: FDA-Public Use
  Company Number: IN-SLATE RUN PHARMACEUTICALS-22IN001099

PATIENT

DRUGS (12)
  1. SODIUM NITROPRUSSIDE [Suspect]
     Active Substance: SODIUM NITROPRUSSIDE
     Indication: Vasodilation procedure
     Dosage: UNK
  2. TIROFIBAN [Suspect]
     Active Substance: TIROFIBAN
     Indication: Product used for unknown indication
     Dosage: INTRARENAL
  3. NITROGLYCERIN [Suspect]
     Active Substance: NITROGLYCERIN
     Indication: Vasodilatation
     Dosage: UNK
  4. UNSPECIFIED INGREDIENT [Concomitant]
     Active Substance: UNSPECIFIED INGREDIENT
     Indication: Generalised tonic-clonic seizure
  5. AMLODIPINE [Concomitant]
     Active Substance: AMLODIPINE BESYLATE
     Indication: Hypertension
     Dosage: 5 MILLIGRAM, QD
  6. AMLODIPINE [Concomitant]
     Active Substance: AMLODIPINE BESYLATE
     Dosage: 10 MILLIGRAM
  7. CLONIDINE [Concomitant]
     Active Substance: CLONIDINE
     Indication: Hypertension
     Dosage: 200 MICROGRAM IN BOLUS DOSAGES
  8. LABETALOL [Concomitant]
     Active Substance: LABETALOL\LABETALOL HYDROCHLORIDE
     Indication: Hypertension
     Dosage: UNK
     Route: 042
  9. UNSPECIFIED INGREDIENT [Concomitant]
     Active Substance: UNSPECIFIED INGREDIENT
     Indication: Fluid replacement
  10. UNSPECIFIED INGREDIENT [Concomitant]
     Active Substance: UNSPECIFIED INGREDIENT
     Indication: Hypertension
  11. FENTANYL [Concomitant]
     Active Substance: FENTANYL
     Indication: Abdominal pain
     Route: 042
  12. UNSPECIFIED INGREDIENT [Concomitant]
     Active Substance: UNSPECIFIED INGREDIENT
     Indication: Abdominal pain
     Route: 042

REACTIONS (4)
  - Drug ineffective for unapproved indication [Recovered/Resolved]
  - Blood creatinine increased [Recovered/Resolved]
  - Anuria [Recovered/Resolved]
  - Off label use [Unknown]
